FAERS Safety Report 13776479 (Version 1)
Quarter: 2017Q3

REPORT INFORMATION
  Report Type: Spontaneous
  Country: IT (occurrence: IT)
  Receive Date: 20170721
  Receipt Date: 20170721
  Transmission Date: 20171127
  Serious: Yes (Other)
  Sender: FDA-Public Use
  Company Number: IT-PFIZER INC-2755218

PATIENT
  Age: 83 Year
  Sex: Male
  Weight: 74 kg

DRUGS (4)
  1. VISIPAQUE [Suspect]
     Active Substance: IODIXANOL
     Indication: COMPUTERISED TOMOGRAM CORONARY ARTERY
     Dosage: 130 MG, FREQ: TOTAL.
     Route: 022
     Dates: start: 20150209, end: 20150209
  2. HEPARIN SODIUM. [Suspect]
     Active Substance: HEPARIN SODIUM
     Indication: COMPUTERISED TOMOGRAM CORONARY ARTERY
     Dosage: 6000 KIU, FREQ: TOTAL
     Route: 042
     Dates: start: 20150209, end: 20150209
  3. GLYCERYL TRINITRATE [Concomitant]
     Active Substance: NITROGLYCERIN
     Indication: COMPUTERISED TOMOGRAM CORONARY ARTERY
     Dosage: 2.1 MG, UNK
     Route: 022
     Dates: start: 20150209, end: 20150209
  4. LIDOCAINE HYDROCHLORIDE. [Suspect]
     Active Substance: LIDOCAINE HYDROCHLORIDE
     Indication: LOCAL ANAESTHESIA
     Dosage: 40 MG, FREQ: TOTAL.
     Route: 058
     Dates: start: 20150209, end: 20150209

REACTIONS (2)
  - Lip oedema [Recovering/Resolving]
  - Tongue oedema [Recovering/Resolving]

NARRATIVE: CASE EVENT DATE: 20150209
